FAERS Safety Report 6534572-8 (Version None)
Quarter: 2010Q1

REPORT INFORMATION
  Report Type: 
  Country: None (occurrence: None)
  Receive Date: 20100112
  Receipt Date: 20100108
  Transmission Date: 20100710
  Serious: Yes (Other)
  Sender: FDA-Public Use
  Company Number: A0772325A

PATIENT
  Age: 58 Year
  Sex: Female

DRUGS (30)
  1. REQUIP XL [Suspect]
     Indication: PARKINSON'S DISEASE
     Dosage: 14MG IN THE MORNING
     Route: 048
     Dates: start: 20031101, end: 20091119
  2. ROPINIROLE [Suspect]
     Indication: PARKINSON'S DISEASE
     Dosage: 3MG UNKNOWN
     Route: 048
     Dates: start: 20080601, end: 20081201
  3. CALCIUM [Concomitant]
  4. IRON [Concomitant]
  5. ADVAIR DISKUS 100/50 [Concomitant]
  6. ALBUTEROL SULATE [Concomitant]
  7. COMBGEN [Concomitant]
  8. OMEPRAZOLE [Concomitant]
  9. POTASSIUM [Concomitant]
  10. MIACALCIN [Concomitant]
  11. TRIAMCINOLONE [Concomitant]
  12. DILAUDID [Concomitant]
  13. ENULOSE [Concomitant]
  14. HAWTHORN BERRY [Concomitant]
  15. SELEGILINE HCL [Concomitant]
  16. SINEMET [Concomitant]
  17. ATIVAN [Concomitant]
  18. POTASSIUM [Concomitant]
  19. LYRICA [Concomitant]
  20. TIZANIDINE HYDROCHLORIDE [Concomitant]
  21. HYDROCHLOROTHIAZIDE [Concomitant]
  22. CALCITONIN [Concomitant]
  23. OXYCODONE [Concomitant]
  24. VITAMIN D [Concomitant]
  25. MAGNESIUM [Concomitant]
  26. ZINC [Concomitant]
  27. ALOE VERA [Concomitant]
  28. MELATONIN [Concomitant]
  29. PROVENTIL [Concomitant]
  30. UNSPECIFIED MEDICATION [Concomitant]

REACTIONS (9)
  - AMNESIA [None]
  - BLOOD PRESSURE ORTHOSTATIC [None]
  - DYSARTHRIA [None]
  - DYSGRAPHIA [None]
  - FAECAL INCONTINENCE [None]
  - GAIT DISTURBANCE [None]
  - HEADACHE [None]
  - INSOMNIA [None]
  - WITHDRAWAL SYNDROME [None]
